FAERS Safety Report 6742170-6 (Version None)
Quarter: 2010Q2

REPORT INFORMATION
  Report Type: 
  Country: None (occurrence: None)
  Receive Date: 20100524
  Receipt Date: 20091120
  Transmission Date: 20101027
  Serious: Yes (Life-Threatening, Hospitalization)
  Sender: FDA-Public Use
  Company Number: 2009SP037802

PATIENT
  Age: 56 Year
  Sex: Male
  Weight: 75 kg

DRUGS (5)
  1. BOCEPREVIR (SCH-503034) [Suspect]
     Indication: HEPATITIS C
     Dosage: 800 MG;TID;PO
     Route: 048
     Dates: start: 20090703, end: 20091120
  2. PEGASYS [Suspect]
     Indication: HEPATITIS C
     Dosage: 150 MCG;QW;SC
     Route: 058
     Dates: start: 20090605, end: 20091113
  3. REBETOL [Suspect]
     Indication: HEPATITIS C
     Dosage: 1200 MG; QD; PO
     Route: 048
     Dates: start: 20090605, end: 20091120
  4. NEORECORMON [Concomitant]
  5. DEBRIDAT [Concomitant]

REACTIONS (8)
  - CHLAMYDIAL INFECTION [None]
  - FEBRILE NEUTROPENIA [None]
  - HYPERSENSITIVITY [None]
  - LICHEN PLANUS [None]
  - LUNG INFECTION [None]
  - LYMPHADENOPATHY [None]
  - LYMPHOPENIA [None]
  - URTICARIA [None]
